FAERS Safety Report 20003959 (Version 1)
Quarter: 2021Q4

REPORT INFORMATION
  Report Type: Spontaneous
  Country: CN (occurrence: CN)
  Receive Date: 20211027
  Receipt Date: 20211027
  Transmission Date: 20220303
  Serious: Yes (Other)
  Sender: FDA-Public Use
  Company Number: CN-PFIZER INC-202101375727

PATIENT
  Age: 5 Week
  Sex: Female
  Weight: 4.5 kg

DRUGS (1)
  1. AZITHROMYCIN ANHYDROUS [Suspect]
     Active Substance: AZITHROMYCIN ANHYDROUS
     Indication: Bronchitis
     Dosage: 40 MG, 1X/DAY
     Route: 048
     Dates: start: 20210106, end: 20210109

REACTIONS (1)
  - Diarrhoea neonatal [Recovering/Resolving]

NARRATIVE: CASE EVENT DATE: 20210109
